FAERS Safety Report 6920924-0 (Version None)
Quarter: 2010Q3

REPORT INFORMATION
  Report Type: 
  Country: None (occurrence: None)
  Receive Date: 20100812
  Receipt Date: 20100805
  Transmission Date: 20110219
  Serious: Yes (Other)
  Sender: FDA-Public Use
  Company Number: US-JNJCH-2007088884

PATIENT
  Sex: Female
  Weight: 68 kg

DRUGS (5)
  1. ZYRTEC [Suspect]
     Indication: HYPERSENSITIVITY
     Route: 048
  2. PAXIL [Concomitant]
     Indication: BACK PAIN
     Dosage: DAILY DOSE:25MG
     Route: 065
  3. ACETAMINOPHEN W/ CODEINE [Concomitant]
     Indication: BACK PAIN
     Route: 065
  4. CARISOPRODOL [Concomitant]
     Indication: BACK PAIN
     Route: 065
  5. ALPRAZOLAM [Concomitant]
     Route: 065

REACTIONS (2)
  - BLOOD POTASSIUM DECREASED [None]
  - PNEUMONIA [None]
